FAERS Safety Report 7549623-1 (Version None)
Quarter: 2011Q2

REPORT INFORMATION
  Report Type: 
  Country: None (occurrence: None)
  Receive Date: 20110615
  Receipt Date: 20110609
  Transmission Date: 20111010
  Serious: Yes (Other)
  Sender: FDA-Public Use
  Company Number: US-SANOFI-AVENTIS-2011SA036779

PATIENT
  Sex: Female

DRUGS (2)
  1. PLAVIX [Suspect]
     Route: 065
  2. PRILOSEC [Interacting]
     Route: 065

REACTIONS (4)
  - THROMBOSIS [None]
  - DRUG INTERACTION [None]
  - BLINDNESS [None]
  - ABDOMINAL PAIN UPPER [None]
